FAERS Safety Report 6521467-9 (Version None)
Quarter: 2009Q4

REPORT INFORMATION
  Report Type: 
  Country: None (occurrence: None)
  Receive Date: 20091230
  Receipt Date: 20091228
  Transmission Date: 20100525
  Serious: Yes (Other)
  Sender: FDA-Public Use
  Company Number: JP-ROCHE-676806

PATIENT
  Sex: Female

DRUGS (8)
  1. RIBAVIRIN [Suspect]
     Indication: HEPATITIS C
     Route: 048
     Dates: start: 20090625, end: 20090819
  2. RIBAVIRIN [Suspect]
     Route: 048
     Dates: start: 20090820, end: 20091228
  3. PEG-INTERFERON ALFA 2A (RO 25-8310) [Suspect]
     Indication: HEPATITIS C
     Route: 058
     Dates: start: 20090625, end: 20091222
  4. FLUITRAN [Concomitant]
     Route: 048
  5. BLOPRESS [Concomitant]
     Dosage: DRUG NAME ALSO REPORTED AS CANDESARTAN CILEXETIL
     Route: 048
  6. PARIET [Concomitant]
     Dosage: DRUG NAME ALSO REPORTED AS SODIUM RABEPRAZOLE
     Route: 048
     Dates: start: 20090625, end: 20090630
  7. LAC-B [Concomitant]
     Route: 048
     Dates: start: 20090709, end: 20090713
  8. INFLUENZA A VACCINE [Concomitant]
     Dosage: DRUG NAME REPORTED AS BIKEN HA(INFLUENZA HA VACCINE)
     Route: 058
     Dates: start: 20091023, end: 20091023

REACTIONS (8)
  - ABDOMINAL DISCOMFORT [None]
  - DIARRHOEA [None]
  - HAEMOGLOBIN DECREASED [None]
  - HEADACHE [None]
  - INTERSTITIAL LUNG DISEASE [None]
  - MALAISE [None]
  - PYREXIA [None]
  - RESIDUAL URINE [None]
